FAERS Safety Report 8926905 (Version 2)
Quarter: 2012Q4

REPORT INFORMATION
  Report Type: 
  Country: US (occurrence: US)
  Receive Date: 20121127
  Receipt Date: 20121212
  Transmission Date: 20130627
  Serious: Yes (Other)
  Sender: FDA-Public Use
  Company Number: CHPA2012US023811

PATIENT
  Age: 7 Year
  Sex: Female

DRUGS (6)
  1. MAALOX ANTACID/ANTIGAS MAX LIQ UNKNOWN [Suspect]
     Indication: GASTRITIS
     Dosage: 1 tsp per afternoon
     Route: 048
  2. PULMICORT [Suspect]
  3. ZANTAC [Concomitant]
  4. NEXIUM 1-2-3 [Concomitant]
  5. PREVACID [Concomitant]
  6. FLOVENT [Concomitant]

REACTIONS (9)
  - Eosinophilic oesophagitis [Not Recovered/Not Resolved]
  - Arthralgia [Not Recovered/Not Resolved]
  - Pain in extremity [Not Recovered/Not Resolved]
  - Weight decreased [Recovered/Resolved]
  - Ulcer [Recovered/Resolved]
  - Pain [Recovered/Resolved]
  - Off label use [Unknown]
  - Therapeutic response unexpected [Unknown]
  - Prescribed overdose [Unknown]
